FAERS Safety Report 4631233-7 (Version None)
Quarter: 2005Q2

REPORT INFORMATION
  Report Type: 
  Country: None (occurrence: None)
  Receive Date: 20050407
  Receipt Date: 20050407
  Transmission Date: 20051028
  Serious: Yes (Other)
  Sender: FDA-Public Use
  Company Number: None

PATIENT
  Sex: Female
  Weight: 52.1637 kg

DRUGS (1)
  1. OXYCONTIN [Suspect]
     Indication: BACK PAIN
     Dosage: HAS BEEN TAKEN 80 MG QID IN FALL 2003
     Dates: start: 20040601

REACTIONS (2)
  - GASTRITIS [None]
  - PHARMACEUTICAL PRODUCT COMPLAINT [None]
